FAERS Safety Report 7959756-3 (Version None)
Quarter: 2011Q4

REPORT INFORMATION
  Report Type: 
  Country: None (occurrence: None)
  Receive Date: 20111206
  Receipt Date: 20111125
  Transmission Date: 20120403
  Serious: Yes (Other)
  Sender: FDA-Public Use
  Company Number: FR-GLAXOSMITHKLINE-B0765173A

PATIENT
  Sex: Female

DRUGS (2)
  1. ZOVIRAX [Suspect]
     Indication: ORAL HERPES
     Dosage: 1APP CUMULATIVE DOSE
     Route: 061
     Dates: start: 20111006, end: 20111006
  2. VALACYCLOVIR HYDROCHLORIDE [Suspect]
     Indication: ORAL HERPES
     Dosage: 2TAB CUMULATIVE DOSE
     Route: 048
     Dates: start: 20111006, end: 20111006

REACTIONS (2)
  - URTICARIA [None]
  - EYELID OEDEMA [None]
